FAERS Safety Report 18005004 (Version 1)
Quarter: 2020Q3

REPORT INFORMATION
  Report Type: Spontaneous
  Country: US (occurrence: US)
  Receive Date: 20200709
  Receipt Date: 20200709
  Transmission Date: 20201103
  Serious: No
  Sender: FDA-Public Use
  Company Number: None

PATIENT
  Age: 46 Year
  Sex: Male
  Weight: 110 kg

DRUGS (7)
  1. CEFTRIAXONE 1 GRAM IV Q24H [Concomitant]
     Dates: start: 20200630, end: 20200706
  2. ASCORBIC ACID 500 MG PO DAILY [Concomitant]
     Dates: start: 20200701, end: 20200706
  3. DEXAMETHASONE 4 MG IV DAILY [Concomitant]
     Dates: start: 20200701, end: 20200706
  4. ZINC SULFATE 220 MG PO DAILY [Concomitant]
     Dates: start: 20200630, end: 20200706
  5. DOXYCYCLINE 100 MG PO BID [Concomitant]
     Dates: start: 20200701, end: 20200706
  6. REMDESIVIR. [Suspect]
     Active Substance: REMDESIVIR
     Indication: COVID-19 PNEUMONIA
     Route: 042
     Dates: start: 20200701, end: 20200703
  7. GUAIFENESIN ER 600 MG PO BID [Concomitant]
     Dates: start: 20200630, end: 20200706

REACTIONS (4)
  - Therapy interrupted [None]
  - Nonalcoholic fatty liver disease [None]
  - Condition aggravated [None]
  - Alanine aminotransferase increased [None]

NARRATIVE: CASE EVENT DATE: 20200704
